FAERS Safety Report 9314872 (Version 1)
Quarter: 2013Q2

REPORT INFORMATION
  Report Type: Spontaneous
  Country: ES (occurrence: ES)
  Receive Date: 20130529
  Receipt Date: 20130529
  Transmission Date: 20140414
  Serious: Yes (Death, Hospitalization)
  Sender: FDA-Public Use
  Company Number: ES-ROCHE-1229057

PATIENT
  Sex: Female

DRUGS (14)
  1. LUCENTIS [Suspect]
     Indication: DIABETIC RETINAL OEDEMA
     Dosage: STRENGTH: 10 MG/ML
     Route: 050
     Dates: start: 20120111
  2. LUCENTIS [Suspect]
     Route: 050
     Dates: start: 20130116
  3. PARAPRES [Concomitant]
  4. CAPTOPRIL [Concomitant]
  5. TRAVATAN [Concomitant]
  6. SINTROM [Concomitant]
  7. AZOPT [Concomitant]
  8. ARTEDIL [Concomitant]
  9. SECALIP [Concomitant]
  10. ESOMEPRAZOLE [Concomitant]
  11. CRESTOR [Concomitant]
  12. ORFIDAL [Concomitant]
  13. NOLOTIL [Concomitant]
  14. BUSCAPINA [Concomitant]

REACTIONS (1)
  - Cerebral haemorrhage [Fatal]
